FAERS Safety Report 4353913-3 (Version None)
Quarter: 2004Q2

REPORT INFORMATION
  Report Type: 
  Country: None (occurrence: None)
  Receive Date: 20040503
  Receipt Date: 20040420
  Transmission Date: 20050107
  Serious: Yes (Hospitalization)
  Sender: FDA-Public Use
  Company Number: 04P-056-0258105-00

PATIENT
  Age: 67 Year
  Sex: Male

DRUGS (11)
  1. DEPAKOTE [Suspect]
     Indication: DELUSION
     Dosage: SEE IMAGE
     Route: 048
     Dates: start: 20040305, end: 20040306
  2. DEPAKOTE [Suspect]
     Indication: MANIA
     Dosage: SEE IMAGE
     Route: 048
     Dates: start: 20040305, end: 20040306
  3. DEPAKOTE [Suspect]
     Indication: DELUSION
     Dosage: SEE IMAGE
     Route: 048
     Dates: start: 20040307, end: 20040308
  4. DEPAKOTE [Suspect]
     Indication: MANIA
     Dosage: SEE IMAGE
     Route: 048
     Dates: start: 20040307, end: 20040308
  5. DEPAKOTE [Suspect]
     Indication: DELUSION
     Dosage: SEE IMAGE
     Route: 048
     Dates: start: 20040309, end: 20040310
  6. DEPAKOTE [Suspect]
     Indication: MANIA
     Dosage: SEE IMAGE
     Route: 048
     Dates: start: 20040309, end: 20040310
  7. RISPERIDONE [Concomitant]
  8. OXAZEPAM [Concomitant]
  9. BIPERIDEN HYDROCHLORIDE [Concomitant]
  10. ZOPICLONE [Concomitant]
  11. FENOFIBRATE [Concomitant]

REACTIONS (8)
  - AREFLEXIA [None]
  - CONFUSIONAL STATE [None]
  - DEHYDRATION [None]
  - DYSSTASIA [None]
  - ELECTROENCEPHALOGRAM ABNORMAL [None]
  - ENCEPHALOPATHY [None]
  - HYPERAMMONAEMIA [None]
  - LOCKED-IN SYNDROME [None]
